FAERS Safety Report 8535475 (Version 2)
Quarter: 2012Q4

REPORT INFORMATION
  Report Type: 
  Country: US (occurrence: US)
  Receive Date: 20120430
  Receipt Date: 20121026
  Transmission Date: 20130627
  Serious: Yes (Hospitalization)
  Sender: FDA-Public Use
  Company Number: US-BAYER-2012-040176

PATIENT
  Age: 38 Year
  Sex: Female
  Weight: 68.03 kg

DRUGS (7)
  1. YAZ [Suspect]
     Indication: CONTRACEPTION
     Dosage: UNK
     Dates: start: 200703, end: 200806
  2. YAZ [Suspect]
     Indication: PREMENSTRUAL SYNDROME
  3. YAZ [Suspect]
     Indication: PREMENSTRUAL DYSPHORIC DISORDER
  4. SYNTHROID [Concomitant]
     Indication: HYPOTHYROIDISM
     Dosage: 25 mg, daily
     Route: 048
     Dates: start: 2004
  5. ZOLOFT [Concomitant]
     Indication: DEPRESSION
     Dosage: 50 mg, daily
     Dates: start: 2005
  6. ZOLOFT [Concomitant]
     Indication: PREMENSTRUAL SYNDROME
  7. ZOLOFT [Concomitant]
     Indication: PREMENSTRUAL SYNDROME

REACTIONS (8)
  - Cholelithiasis [None]
  - Cholecystitis acute [None]
  - Abdominal pain [None]
  - Emotional distress [None]
  - Anxiety [None]
  - Pain [None]
  - General physical health deterioration [None]
  - Mental disorder [None]
